FAERS Safety Report 4555071-9 (Version None)
Quarter: 2004Q4

REPORT INFORMATION
  Report Type: 
  Country: None (occurrence: None)
  Receive Date: 20041217
  Receipt Date: 20040803
  Transmission Date: 20050328
  Serious: No
  Sender: FDA-Public Use
  Company Number: 2004-BP-05365BP

PATIENT
  Age: 83 Year
  Sex: Female

DRUGS (5)
  1. SPIRIVA HANDIHANDLER (TIOTROPIUM BROMIDE) [Suspect]
     Indication: CHRONIC OBSTRUCTIVE AIRWAYS DISEASE
     Dosage: 18 MCG (18 MCG), IH
     Route: 055
  2. COUMADIN [Concomitant]
  3. TAMBOCOR [Concomitant]
  4. VERAPAMIL [Concomitant]
  5. COMBIVENT [Concomitant]

REACTIONS (3)
  - HEADACHE [None]
  - STOMATITIS [None]
  - THROAT IRRITATION [None]
